FAERS Safety Report 4547221-5 (Version None)
Quarter: 2005Q1

REPORT INFORMATION
  Report Type: 
  Country: None (occurrence: None)
  Receive Date: 20050107
  Receipt Date: 20041228
  Transmission Date: 20050727
  Serious: Yes (Other)
  Sender: FDA-Public Use
  Company Number: US-JNJFOC-20050100065

PATIENT
  Sex: Male

DRUGS (9)
  1. TOPAMAX [Suspect]
  2. TOPAMAX [Suspect]
     Dosage: 100 MG IN AM, 200 MG IN PM
  3. DILANTIN [Concomitant]
  4. PAXIL [Concomitant]
  5. METHADONE HCL [Concomitant]
  6. SYNTHROID [Concomitant]
  7. PAXIL [Concomitant]
  8. METHADONE HCL [Concomitant]
  9. SYNTHROID [Concomitant]

REACTIONS (5)
  - BRADYCARDIA NEONATAL [None]
  - DRUG EXPOSURE DURING PREGNANCY [None]
  - NEONATAL APNOEIC ATTACK [None]
  - PREGNANCY [None]
  - PREMATURE BABY [None]
